FAERS Safety Report 7703547-5 (Version None)
Quarter: 2011Q3

REPORT INFORMATION
  Report Type: 
  Country: None (occurrence: None)
  Receive Date: 20110823
  Receipt Date: 20110809
  Transmission Date: 20111222
  Serious: Yes (Hospitalization)
  Sender: FDA-Public Use
  Company Number: PHHY2011IE72047

PATIENT
  Sex: Female

DRUGS (3)
  1. CATAFLAM [Suspect]
     Indication: OEDEMA PERIPHERAL
     Dosage: 50 MG, TID
     Route: 048
     Dates: start: 20110713, end: 20110714
  2. CALCICHEW-D3 FORTE [Concomitant]
     Dosage: 2 DF, UNK
     Route: 048
  3. LIPITOR [Concomitant]
     Dosage: 40 MG, UNK
     Route: 048

REACTIONS (4)
  - CONVULSION [None]
  - MALAISE [None]
  - FEELING COLD [None]
  - PYREXIA [None]
